FAERS Safety Report 8683284 (Version 2)
Quarter: 2012Q4

REPORT INFORMATION
  Report Type: 
  Country: US (occurrence: US)
  Receive Date: 20120726
  Receipt Date: 20120829
  Transmission Date: 20130627
  Serious: No
  Sender: FDA-Public Use
  Company Number: US-PFIZER INC-2012176706

PATIENT
  Age: 85 Year
  Sex: Male
  Weight: 99.7 kg

DRUGS (2)
  1. ADVIL [Suspect]
     Indication: INFLAMMATION
     Dosage: UNK, 3x/day with meal
     Route: 048
     Dates: start: 20120719, end: 201207
  2. ADVIL [Suspect]
     Indication: PAIN IN EXTREMITY

REACTIONS (4)
  - Dysphagia [Recovered/Resolved]
  - Sensation of foreign body [Unknown]
  - Dysuria [Recovered/Resolved]
  - Product size issue [Recovered/Resolved]
